FAERS Safety Report 19599020 (Version 2)
Quarter: 2022Q2

REPORT INFORMATION
  Report Type: Report from Study
  Country: US (occurrence: US)
  Receive Date: 20210722
  Receipt Date: 20220513
  Transmission Date: 20220721
  Serious: Yes (Other)
  Sender: FDA-Public Use
  Company Number: US-TEVA-2021-US-1933204

PATIENT
  Age: 51 Year
  Sex: Male

DRUGS (2)
  1. ACTIQ [Suspect]
     Active Substance: FENTANYL CITRATE
     Indication: Neoplasm malignant
     Route: 065
  2. ACTIQ [Suspect]
     Active Substance: FENTANYL CITRATE
     Indication: Internal haemorrhage

REACTIONS (10)
  - Haemorrhage [Unknown]
  - Crohn^s disease [Unknown]
  - Mouth haemorrhage [Unknown]
  - Gastrointestinal disorder [Unknown]
  - Vomiting [Unknown]
  - Blood electrolytes decreased [Unknown]
  - Product dose omission issue [Unknown]
  - Pain [Unknown]
  - Feeling abnormal [Unknown]
  - General physical health deterioration [Unknown]
